FAERS Safety Report 18302117 (Version 8)
Quarter: 2021Q3

REPORT INFORMATION
  Report Type: Spontaneous
  Country: CO (occurrence: CO)
  Receive Date: 20200923
  Receipt Date: 20210913
  Transmission Date: 20211014
  Serious: No
  Sender: FDA-Public Use
  Company Number: CO-PFIZER INC-2020349177

PATIENT
  Age: 59 Year
  Sex: Female

DRUGS (1)
  1. ENBREL [Suspect]
     Active Substance: ETANERCEPT
     Indication: RHEUMATOID ARTHRITIS
     Dosage: 50 MG, WEEKLY EVERY MONDAY
     Route: 058
     Dates: start: 20200317

REACTIONS (9)
  - Accidental exposure to product [Unknown]
  - Cough [Recovering/Resolving]
  - Abdominal discomfort [Recovering/Resolving]
  - Chills [Recovering/Resolving]
  - Device leakage [Unknown]
  - Dry throat [Recovering/Resolving]
  - Exposure via skin contact [Unknown]
  - Nausea [Recovering/Resolving]
  - Drug dose omission by device [Unknown]

NARRATIVE: CASE EVENT DATE: 2020
